FAERS Safety Report 5074696-8 (Version None)
Quarter: 2006Q3

REPORT INFORMATION
  Report Type: 
  Country: None (occurrence: None)
  Receive Date: 20060803
  Receipt Date: 20060721
  Transmission Date: 20061208
  Serious: Yes (Death, Hospitalization)
  Sender: FDA-Public Use
  Company Number: 2006CT000643

PATIENT
  Age: 74 Year
  Sex: Female
  Weight: 57.6068 kg

DRUGS (11)
  1. VENTAVIS [Suspect]
     Indication: PULMONARY HYPERTENSION
     Dosage: 5 UG;6XD;INH
     Route: 055
     Dates: start: 20060718, end: 20060719
  2. POTASSIUM CHLORIDE [Concomitant]
  3. VYTORIN [Concomitant]
  4. SILDENAFIL CITRATE [Concomitant]
  5. LASIX [Concomitant]
  6. OSCAL [Concomitant]
  7. ASPIRIN [Concomitant]
  8. ATENOLOL [Concomitant]
  9. PREDNISONE TAB [Concomitant]
  10. CARDIZEM [Concomitant]
  11. METHOTREXATE [Concomitant]

REACTIONS (3)
  - FALL [None]
  - MYOCARDIAL INFARCTION [None]
  - PAIN IN EXTREMITY [None]
